FAERS Safety Report 10453404 (Version 1)
Quarter: 2014Q3

REPORT INFORMATION
  Report Type: Spontaneous
  Country: US (occurrence: US)
  Receive Date: 20140915
  Receipt Date: 20140915
  Transmission Date: 20150326
  Serious: Yes (Hospitalization)
  Sender: FDA-Public Use
  Company Number: US-FRI-1000070606

PATIENT
  Sex: Female

DRUGS (13)
  1. IPRATROPIUM BROMIDE. [Concomitant]
     Active Substance: IPRATROPIUM BROMIDE
  2. POTASSIUM [Concomitant]
     Active Substance: POTASSIUM
  3. OXYCODONE [Concomitant]
     Active Substance: OXYCODONE
  4. FLEXERIL [Concomitant]
     Active Substance: CYCLOBENZAPRINE HYDROCHLORIDE
  5. ZOCOR [Concomitant]
     Active Substance: SIMVASTATIN
  6. FENTANYL. [Concomitant]
     Active Substance: FENTANYL
  7. DALIRESP [Suspect]
     Active Substance: ROFLUMILAST
     Indication: DYSPNOEA
     Dates: start: 2014, end: 2014
  8. RANITIDINE [Suspect]
     Active Substance: RANITIDINE\RANITIDINE HYDROCHLORIDE
     Indication: GASTRIC DISORDER
     Dosage: 300 MG
     Route: 048
     Dates: start: 2006
  9. XANAX [Concomitant]
     Active Substance: ALPRAZOLAM
  10. OXYGEN. [Concomitant]
     Active Substance: OXYGEN
  11. WATER PILL [Concomitant]
     Active Substance: UNSPECIFIED INGREDIENT
  12. BROVANA [Concomitant]
     Active Substance: ARFORMOTEROL TARTRATE
  13. DUONEB [Concomitant]
     Active Substance: ALBUTEROL SULFATE\IPRATROPIUM BROMIDE

REACTIONS (5)
  - Weight decreased [Unknown]
  - Decreased appetite [Unknown]
  - Productive cough [Unknown]
  - Lung disorder [Unknown]
  - Off label use [Not Recovered/Not Resolved]

NARRATIVE: CASE EVENT DATE: 2014
